FAERS Safety Report 9276650 (Version 2)
Quarter: 2013Q2

REPORT INFORMATION
  Report Type: Spontaneous
  Country: SG (occurrence: SG)
  Receive Date: 20130507
  Receipt Date: 20130520
  Transmission Date: 20140414
  Serious: Yes (Death)
  Sender: FDA-Public Use
  Company Number: SG-ALEXION-A201300949

PATIENT
  Sex: Female

DRUGS (4)
  1. SOLIRIS 300MG [Suspect]
     Indication: PROPHYLAXIS AGAINST TRANSPLANT REJECTION
     Dosage: 1200 MG, SINGLE
     Route: 042
     Dates: start: 20120924, end: 20120924
  2. SOLIRIS 300MG [Suspect]
     Indication: OFF LABEL USE
     Dosage: 600 MG, Q2W
     Route: 042
     Dates: start: 20121008
  3. PROGRAF [Concomitant]
  4. MYFORTIC [Concomitant]

REACTIONS (1)
  - Coronary artery disease [Fatal]
